FAERS Safety Report 21127677 (Version 1)
Quarter: 2022Q3

REPORT INFORMATION
  Report Type: Spontaneous
  Country: US (occurrence: US)
  Receive Date: 20220725
  Receipt Date: 20220725
  Transmission Date: 20221027
  Serious: Yes (Other)
  Sender: FDA-Public Use
  Company Number: US-ABBVIE-21K-163-4214123-00

PATIENT
  Sex: Female

DRUGS (1)
  1. SYNTHROID [Suspect]
     Active Substance: LEVOTHYROXINE SODIUM
     Indication: Product used for unknown indication
     Route: 048
     Dates: start: 2005

REACTIONS (7)
  - Tachycardia [Unknown]
  - Nail disorder [Unknown]
  - Hair disorder [Unknown]
  - Osteoporosis [Unknown]
  - Bone loss [Unknown]
  - Impatience [Unknown]
  - Alopecia [Unknown]
